FAERS Safety Report 17914450 (Version 3)
Quarter: 2020Q4

REPORT INFORMATION
  Report Type: Spontaneous
  Country: US (occurrence: US)
  Receive Date: 20200618
  Receipt Date: 20201223
  Transmission Date: 20210113
  Serious: Yes (Hospitalization)
  Sender: FDA-Public Use
  Company Number: US-ADAMAS PHARMA, LLC-2020ADA00897

PATIENT
  Sex: Male

DRUGS (9)
  1. GOCOVRI [Suspect]
     Active Substance: AMANTADINE
     Dosage: 68.5 MG, 1X/DAY AT BEDTIME
     Route: 048
     Dates: start: 202005
  2. SINEMET [Concomitant]
     Active Substance: CARBIDOPA\LEVODOPA
  3. PRAMIPEXOLE. [Concomitant]
     Active Substance: PRAMIPEXOLE
  4. METFORMIN [Concomitant]
     Active Substance: METFORMIN HYDROCHLORIDE
  5. MELATONIN [Concomitant]
     Active Substance: MELATONIN
  6. GOCOVRI [Suspect]
     Active Substance: AMANTADINE
     Indication: PARKINSON^S DISEASE
     Dosage: 68.5 MG, 1X/DAY AT BEDTIME
     Route: 048
     Dates: start: 201909, end: 202003
  7. GOCOVRI [Suspect]
     Active Substance: AMANTADINE
     Indication: DYSKINESIA
     Dosage: 137 MG (2 CAPSULES), 1X/DAY AT BEDTIME
     Route: 048
     Dates: start: 202003, end: 202005
  8. JANUVIA [Concomitant]
     Active Substance: SITAGLIPTIN PHOSPHATE
  9. CARBIDOPA. [Concomitant]
     Active Substance: CARBIDOPA

REACTIONS (6)
  - Arthralgia [Not Recovered/Not Resolved]
  - Fall [Recovered/Resolved]
  - Pollakiuria [Not Recovered/Not Resolved]
  - Rhabdomyolysis [Recovering/Resolving]
  - Mobility decreased [Not Recovered/Not Resolved]
  - Dizziness [Not Recovered/Not Resolved]

NARRATIVE: CASE EVENT DATE: 2020
